FAERS Safety Report 6597656 (Version 2)
Quarter: 2013Q1

REPORT INFORMATION
  Report Type: Spontaneous
  Country: US (occurrence: US)
  Receive Date: 20080328
  Receipt Date: 20130322
  Transmission Date: 20140127
  Serious: No
  Sender: FDA-Public Use
  Company Number: US-BRISTOL-MYERS SQUIBB COMPANY-13733944

PATIENT
  Age: 48 Year
  Sex: Male
  Weight: 79.36 kg

DRUGS (1)
  1. ERBITUX [Suspect]
     Indication: SQUAMOUS CELL CARCINOMA
     Dosage: HAS RECEIVED 4 TREATMENTS

REACTIONS (1)
  - Dermatitis acneiform [Unknown]
